FAERS Safety Report 9099473 (Version 2)
Quarter: 2013Q1

REPORT INFORMATION
  Report Type: Spontaneous
  Country: GB (occurrence: GB)
  Receive Date: 20130214
  Receipt Date: 20130326
  Transmission Date: 20140127
  Serious: Yes (Other)
  Sender: FDA-Public Use
  Company Number: GB-NICOBRDEVP-2013-02276

PATIENT
  Sex: Female

DRUGS (1)
  1. LAMOTRIGINE (UNKNOWN) [Suspect]
     Indication: PRODUCT USED FOR UNKNOWN INDICATION
     Dosage: 50 MG, UNKNOWN
     Route: 065

REACTIONS (7)
  - Vision blurred [Unknown]
  - Fall [Unknown]
  - Joint injury [Unknown]
  - Drug dispensing error [Unknown]
  - Medication error [Unknown]
  - Overdose [Unknown]
  - Product quality issue [Unknown]
